FAERS Safety Report 5078685-9 (Version None)
Quarter: 2006Q3

REPORT INFORMATION
  Report Type: 
  Country: None (occurrence: None)
  Receive Date: 20060720
  Receipt Date: 20060606
  Transmission Date: 20061208
  Serious: Yes (Other)
  Sender: FDA-Public Use
  Company Number: HQWYE052509JUN06

PATIENT
  Age: 52 Year
  Sex: Female
  Weight: 63.56 kg

DRUGS (1)
  1. ADVIL PM [Suspect]
     Indication: PAIN
     Dosage: 2 TABLET 1X PER 1 DAY ORAL
     Route: 048
     Dates: start: 20060604, end: 20060604

REACTIONS (1)
  - DRUG INEFFECTIVE [None]
